FAERS Safety Report 12008090 (Version 1)
Quarter: 2016Q1

REPORT INFORMATION
  Report Type: Other
  Country: TH (occurrence: TH)
  Receive Date: 20160205
  Receipt Date: 20160205
  Transmission Date: 20160526
  Serious: Yes (Hospitalization)
  Sender: FDA-Public Use
  Company Number: TH-LUPIN PHARMACEUTICALS INC.-2015-04395

PATIENT
  Age: 30 Year
  Sex: Male
  Weight: 65 kg

DRUGS (3)
  1. AZITHROMYCIN ANHYDROUS. [Concomitant]
     Active Substance: AZITHROMYCIN ANHYDROUS
     Indication: MALARIA
     Route: 065
  2. QUININE [Suspect]
     Active Substance: QUININE
     Indication: MALARIA
     Dosage: 8- HOURLY X FIVE DOSES
     Route: 065
  3. CEFTRIAXONE. [Suspect]
     Active Substance: CEFTRIAXONE
     Indication: MALARIA
     Route: 065

REACTIONS (1)
  - Haemolytic anaemia [Recovered/Resolved]
